FAERS Safety Report 8033894-1 (Version None)
Quarter: 2012Q1

REPORT INFORMATION
  Report Type: 
  Country: None (occurrence: None)
  Receive Date: 20120110
  Receipt Date: 20120106
  Transmission Date: 20120608
  Serious: Yes (Life-Threatening, Hospitalization, Disabling, Other)
  Sender: FDA-Public Use
  Company Number: DE-ASTRAZENECA-2011SE77807

PATIENT
  Age: 741 Month
  Sex: Male
  Weight: 85 kg

DRUGS (3)
  1. CISPLATIN [Concomitant]
     Indication: NON-SMALL CELL LUNG CANCER
  2. IRESSA [Suspect]
     Indication: NON-SMALL CELL LUNG CANCER
     Route: 048
     Dates: start: 20110701, end: 20111101
  3. VINCRISTINE [Concomitant]
     Indication: NON-SMALL CELL LUNG CANCER

REACTIONS (6)
  - SCREAMING [None]
  - LOSS OF CONSCIOUSNESS [None]
  - EPILEPSY [None]
  - INTRACRANIAL PRESSURE INCREASED [None]
  - PERSONALITY CHANGE [None]
  - BLINDNESS [None]
